FAERS Safety Report 17400916 (Version 1)
Quarter: 2020Q1

REPORT INFORMATION
  Report Type: Spontaneous
  Country: US (occurrence: US)
  Receive Date: 20200208
  Receipt Date: 20200208
  Transmission Date: 20200409
  Serious: Yes (Hospitalization)
  Sender: FDA-Public Use
  Company Number: None

PATIENT
  Age: 34 Year
  Sex: Female
  Weight: 89.55 kg

DRUGS (2)
  1. GLYBURIDE 2.5 MG [Concomitant]
  2. ZOLOFT [Suspect]
     Active Substance: SERTRALINE HYDROCHLORIDE
     Indication: GENERALISED ANXIETY DISORDER
     Dosage: ?          QUANTITY:1 TABLET(S);?
     Route: 048
     Dates: start: 20200122, end: 20200129

REACTIONS (20)
  - Neurological symptom [None]
  - Hypoaesthesia oral [None]
  - Asthenia [None]
  - Menorrhagia [None]
  - Feeding disorder [None]
  - Disturbance in attention [None]
  - Diarrhoea [None]
  - Fatigue [None]
  - Drug withdrawal syndrome [None]
  - Weight decreased [None]
  - Dry mouth [None]
  - Tongue paralysis [None]
  - Feeling cold [None]
  - Vertigo [None]
  - Anxiety [None]
  - Hypoaesthesia [None]
  - Dyskinesia [None]
  - Adverse drug reaction [None]
  - Insomnia [None]
  - Paraesthesia [None]

NARRATIVE: CASE EVENT DATE: 20200129
